FAERS Safety Report 23739906 (Version 1)
Quarter: 2024Q2

REPORT INFORMATION
  Report Type: Spontaneous
  Country: CO (occurrence: CO)
  Receive Date: 20240414
  Receipt Date: 20240414
  Transmission Date: 20240715
  Serious: Yes (Death, Other)
  Sender: FDA-Public Use
  Company Number: CO-AMGEN-COLSP2024072017

PATIENT
  Age: 60 Year
  Sex: Male

DRUGS (2)
  1. BEVACIZUMAB [Suspect]
     Active Substance: BEVACIZUMAB
     Indication: Oligoastrocytoma
     Dosage: UNK (METRONOMIC DOSES)
     Route: 065
  2. TEMOZOLOMIDE [Concomitant]
     Active Substance: TEMOZOLOMIDE
     Indication: Oligoastrocytoma
     Dosage: UNK ( FIVE CYCLES)
     Route: 065

REACTIONS (2)
  - Death [Fatal]
  - Oligoastrocytoma [Unknown]
